FAERS Safety Report 7774112-9 (Version None)
Quarter: 2011Q3

REPORT INFORMATION
  Report Type: 
  Country: None (occurrence: None)
  Receive Date: 20110923
  Receipt Date: 20110913
  Transmission Date: 20111222
  Serious: Yes (Other)
  Sender: FDA-Public Use
  Company Number: IT-JNJFOC-20110906421

PATIENT
  Age: 34 Year
  Sex: Female

DRUGS (4)
  1. VALPROATE SODIUM [Concomitant]
     Route: 065
  2. CARBAMAZEPINE [Concomitant]
     Route: 065
  3. TOPIRAMATE [Suspect]
     Indication: TEMPORAL LOBE EPILEPSY
     Route: 048
  4. TOPIRAMATE [Suspect]
     Route: 048

REACTIONS (2)
  - MYOCLONUS [None]
  - CONVULSION [None]
